FAERS Safety Report 14878013 (Version 1)
Quarter: 2018Q2

REPORT INFORMATION
  Report Type: Spontaneous
  Country: US (occurrence: US)
  Receive Date: 20180510
  Receipt Date: 20180510
  Transmission Date: 20180711
  Serious: Yes (Hospitalization)
  Sender: FDA-Public Use
  Company Number: US-ASTRAZENECA-2018SE61914

PATIENT
  Age: 83 Year
  Sex: Male

DRUGS (2)
  1. BRILINTA [Suspect]
     Active Substance: TICAGRELOR
     Indication: ACUTE MYOCARDIAL INFARCTION
     Dosage: 180.0MG ONCE/SINGLE ADMINISTRATION
     Route: 048
     Dates: start: 20180503, end: 20180503
  2. ASPIRIN. [Concomitant]
     Active Substance: ASPIRIN
     Indication: ACUTE MYOCARDIAL INFARCTION
     Dosage: 325.0MG ONCE/SINGLE ADMINISTRATION
     Dates: start: 20180503

REACTIONS (2)
  - Haemorrhage intracranial [Unknown]
  - Vision blurred [Unknown]

NARRATIVE: CASE EVENT DATE: 20180503
